FAERS Safety Report 10900713 (Version 1)
Quarter: 2015Q1

REPORT INFORMATION
  Report Type: Spontaneous
  Country: NL (occurrence: None)
  Receive Date: 20150303
  Receipt Date: 20150303
  Transmission Date: 20150721
  Serious: Yes (Life-Threatening, Hospitalization)
  Sender: FDA-Public Use
  Company Number: NSR_01975_2015

PATIENT
  Age: 21 Year
  Sex: Female

DRUGS (2)
  1. BACLOFEN (BACLOFEN) [Suspect]
     Active Substance: BACLOFEN
     Indication: DEPENDENCE
     Dosage: NOT THE PRESCRIBED AMOUNT
  2. GAMMA-HYDROXYBUTYRATE [Suspect]
     Active Substance: 4-HYDROXYBUTANOIC ACID
     Indication: PRODUCT USED FOR UNKNOWN INDICATION
     Dosage: (0.33 L (215 G))

REACTIONS (14)
  - Bradypnoea [None]
  - Hypotonia [None]
  - Hyporeflexia [None]
  - Rhonchi [None]
  - Respiratory distress [None]
  - Coma [None]
  - Memory impairment [None]
  - Fall [None]
  - Intentional product misuse [None]
  - Toxicity to various agents [None]
  - Body temperature decreased [None]
  - Respiratory depression [None]
  - Mydriasis [None]
  - Drug abuse [None]
